FAERS Safety Report 4364993-3 (Version None)
Quarter: 2004Q2

REPORT INFORMATION
  Report Type: 
  Country: None (occurrence: None)
  Receive Date: 20040524
  Receipt Date: 20040524
  Transmission Date: 20050107
  Serious: Yes (Other)
  Sender: FDA-Public Use
  Company Number: None

PATIENT
  Age: 48 Year
  Sex: Female

DRUGS (3)
  1. RESTYLANE LOT 7031 2005-07 [Suspect]
     Dosage: .7ML X ONE DOSE NASOLABIAL FOLD
     Dates: start: 20040423
  2. PHOTODERM [Concomitant]
  3. BOTOX GLABELLA [Concomitant]

REACTIONS (2)
  - ISCHAEMIC ULCER [None]
  - VASCULAR OCCLUSION [None]
